FAERS Safety Report 6120322-6 (Version None)
Quarter: 2009Q1

REPORT INFORMATION
  Report Type: 
  Country: None (occurrence: None)
  Receive Date: 20090312
  Receipt Date: 20090312
  Transmission Date: 20090719
  Serious: Yes (Hospitalization, Other)
  Sender: FDA-Public Use
  Company Number: None

PATIENT
  Age: 23 Year
  Sex: Female
  Weight: 45.3597 kg

DRUGS (2)
  1. VIVITROL [Suspect]
     Indication: DRUG DEPENDENCE
     Dosage: 340 MG 1/MONTH IM
     Route: 030
     Dates: start: 20090212, end: 20090310
  2. ZOLOFT [Concomitant]

REACTIONS (15)
  - ANXIETY [None]
  - ASTHENIA [None]
  - CONVULSION [None]
  - DIARRHOEA [None]
  - DRUG WITHDRAWAL SYNDROME [None]
  - FEELING COLD [None]
  - FEELING HOT [None]
  - HOT FLUSH [None]
  - HYPERAESTHESIA [None]
  - HYPERHIDROSIS [None]
  - INCREASED UPPER AIRWAY SECRETION [None]
  - INSOMNIA [None]
  - MEDICATION ERROR [None]
  - RHINORRHOEA [None]
  - VOMITING [None]
